FAERS Safety Report 4424700-2 (Version None)
Quarter: 2004Q3

REPORT INFORMATION
  Report Type: 
  Country: None (occurrence: None)
  Receive Date: 20040809
  Receipt Date: 20040728
  Transmission Date: 20050211
  Serious: Yes (Death)
  Sender: FDA-Public Use
  Company Number: 208098

PATIENT
  Age: 76 Year
  Sex: Female
  Weight: 56 kg

DRUGS (5)
  1. MABTHERA(RITUXIMAB) CONC FOR SOLUTION FOR INFUSION [Suspect]
     Indication: NON-HODGKIN'S LYMPHOMA
     Dosage: 375 MG/M2, 1/WEEK, INTRAVENOUS
     Route: 042
     Dates: start: 20040217, end: 20040309
  2. CYCLOPHOSPHAMIDE [Suspect]
     Dosage: 750 MG/M2, Q3W, INTRAVENOUS
     Route: 042
     Dates: start: 20040217, end: 20040609
  3. DOXORUBICIN HYDROCHLORIDE [Suspect]
     Dosage: 50 MG/M2, Q3W, INTRAVENOUS
     Route: 042
     Dates: start: 20040217, end: 20040609
  4. VINCRISTINE [Suspect]
     Dosage: 2 MG, Q3W, INTRAVENOUS
     Route: 042
     Dates: start: 20040217, end: 20040609
  5. PREDNISOLONE [Suspect]
     Dosage: 100 MG, Q2W, ORAL
     Route: 048
     Dates: start: 20040217, end: 20040609

REACTIONS (1)
  - PNEUMOCYSTIS CARINII PNEUMONIA [None]
